FAERS Safety Report 21238056 (Version 3)
Quarter: 2022Q4

REPORT INFORMATION
  Report Type: Spontaneous
  Country: US (occurrence: US)
  Receive Date: 20220822
  Receipt Date: 20221114
  Transmission Date: 20230113
  Serious: Yes (Other)
  Sender: FDA-Public Use
  Company Number: US-BRISTOL-MYERS SQUIBB COMPANY-2022-091862

PATIENT
  Age: 84 Year
  Sex: Male

DRUGS (1)
  1. REVLIMID [Suspect]
     Active Substance: LENALIDOMIDE
     Indication: Plasma cell myeloma
     Dosage: FREQUENCY: OTHER
     Route: 048
     Dates: start: 202208

REACTIONS (6)
  - Weight decreased [Unknown]
  - Gait disturbance [Unknown]
  - Peripheral swelling [Unknown]
  - Pruritus [Unknown]
  - Lacrimation increased [Unknown]
  - Thrombosis [Unknown]

NARRATIVE: CASE EVENT DATE: 20220817
